FAERS Safety Report 21897067 (Version 2)
Quarter: 2023Q2

REPORT INFORMATION
  Report Type: Spontaneous
  Country: US (occurrence: US)
  Receive Date: 20230123
  Receipt Date: 20230404
  Transmission Date: 20230721
  Serious: No
  Sender: FDA-Public Use
  Company Number: US-BRISTOL-MYERS SQUIBB COMPANY-2023-009566

PATIENT
  Age: 77 Year
  Sex: Male
  Weight: 82.1 kg

DRUGS (1)
  1. LENALIDOMIDE [Suspect]
     Active Substance: LENALIDOMIDE
     Indication: Plasma cell myeloma in remission
     Dosage: FREQUENCY: MONDAY THRU FRIDAYS Q28 DAYS
     Route: 048
     Dates: start: 20220321

REACTIONS (8)
  - Dyspnoea [Unknown]
  - Lung disorder [Unknown]
  - Asthenia [Unknown]
  - Fall [Unknown]
  - Off label use [Unknown]
  - White blood cell count decreased [Recovered/Resolved]
  - Haemoglobin decreased [Recovered/Resolved]
  - Platelet count decreased [Recovered/Resolved]
